FAERS Safety Report 7170542-7 (Version None)
Quarter: 2010Q4

REPORT INFORMATION
  Report Type: 
  Country: None (occurrence: None)
  Receive Date: 20101217
  Receipt Date: 20101209
  Transmission Date: 20110411
  Serious: Yes (Hospitalization)
  Sender: FDA-Public Use
  Company Number: US-AMGEN-QUU348667

PATIENT

DRUGS (1)
  1. ENBREL [Suspect]
     Indication: RHEUMATOID ARTHRITIS
     Dosage: 50 MG, QWK
     Route: 058
     Dates: start: 19980101, end: 20101126

REACTIONS (12)
  - ANIMAL BITE [None]
  - BACK DISORDER [None]
  - CLAVICLE FRACTURE [None]
  - FALL [None]
  - HEAD INJURY [None]
  - NECK INJURY [None]
  - PARAESTHESIA [None]
  - ROTATOR CUFF SYNDROME [None]
  - SKULL FRACTURE [None]
  - STAPHYLOCOCCAL INFECTION [None]
  - UPPER LIMB FRACTURE [None]
  - WRIST FRACTURE [None]
